FAERS Safety Report 18820983 (Version 1)
Quarter: 2021Q1

REPORT INFORMATION
  Report Type: Spontaneous
  Country: US (occurrence: US)
  Receive Date: 20210201
  Receipt Date: 20210201
  Transmission Date: 20210419
  Serious: Yes (Hospitalization)
  Sender: FDA-Public Use
  Company Number: None

PATIENT
  Age: 56 Year
  Sex: Female

DRUGS (1)
  1. HUMIRA [Suspect]
     Active Substance: ADALIMUMAB
     Indication: PSORIASIS
     Route: 058
     Dates: start: 20200702

REACTIONS (4)
  - Bedridden [None]
  - COVID-19 [None]
  - Feeling abnormal [None]
  - Sarcoidosis [None]

NARRATIVE: CASE EVENT DATE: 20200802
